FAERS Safety Report 8544025-3 (Version None)
Quarter: 2012Q3

REPORT INFORMATION
  Report Type: 
  Country: None (occurrence: None)
  Receive Date: 20120727
  Receipt Date: 20120723
  Transmission Date: 20120928
  Serious: Yes (Hospitalization, Other)
  Sender: FDA-Public Use
  Company Number: US-PFIZER INC-2011140701

PATIENT
  Sex: Female

DRUGS (8)
  1. EFFEXOR [Suspect]
     Dosage: UNK
  2. XANAX [Concomitant]
     Dosage: 1 MG, 2X/DAY
  3. XANAX [Concomitant]
     Dosage: 2 MG, UNK
  4. PRISTIQ [Suspect]
     Indication: DEPRESSION
     Dosage: 50 MG, 1X/DAY, EVERY MORNING
     Dates: start: 20080101
  5. ADDERALL 5 [Concomitant]
     Dosage: 15; 2X/DAY
  6. PRISTIQ [Suspect]
     Dosage: 50 MG, UNK
     Route: 048
     Dates: start: 20101201, end: 20101201
  7. ADDERALL 5 [Concomitant]
     Dosage: 30 MG, UNK
  8. VENLAFAXINE HCL [Suspect]
     Dosage: UNK

REACTIONS (8)
  - NAUSEA [None]
  - NEUROPATHY PERIPHERAL [None]
  - FEELING ABNORMAL [None]
  - RHEUMATOID ARTHRITIS [None]
  - SPINAL COLUMN STENOSIS [None]
  - FALL [None]
  - PERONEAL NERVE PALSY [None]
  - DIARRHOEA [None]
